FAERS Safety Report 4548454-4 (Version None)
Quarter: 2005Q1

REPORT INFORMATION
  Report Type: 
  Country: None (occurrence: None)
  Receive Date: 20050110
  Receipt Date: 20020918
  Transmission Date: 20050727
  Serious: Yes (Hospitalization)
  Sender: FDA-Public Use
  Company Number: US-GLAXOSMITHKLINE-A0381214A

PATIENT
  Age: 42 Year
  Sex: Male
  Weight: 70.6 kg

DRUGS (10)
  1. LAMICTAL [Suspect]
     Indication: BIPOLAR DISORDER
     Route: 048
     Dates: start: 20010901
  2. TRILEPTAL [Suspect]
  3. ANTI-PSYCHOTIC MEDICATION [Suspect]
  4. GABATRIL [Suspect]
     Indication: BIPOLAR DISORDER
     Dosage: 2MG FOUR TIMES PER DAY
     Route: 048
     Dates: start: 20020701, end: 20020904
  5. NEURONTIN [Suspect]
     Indication: BIPOLAR DISORDER
     Dates: end: 20020908
  6. LITHIUM [Concomitant]
  7. CLARITIN [Concomitant]
  8. SONATA [Concomitant]
  9. COLACE [Concomitant]
  10. MULTIPLE VITAMIN [Concomitant]

REACTIONS (6)
  - AGRANULOCYTOSIS [None]
  - BIPOLAR DISORDER [None]
  - BRADYCARDIA [None]
  - HYPOTENSION [None]
  - THROMBOCYTOPENIA [None]
  - WHITE BLOOD CELL COUNT DECREASED [None]
